FAERS Safety Report 16713384 (Version 1)
Quarter: 2019Q3

REPORT INFORMATION
  Report Type: Spontaneous
  Country: FR (occurrence: FR)
  Receive Date: 20190818
  Receipt Date: 20190818
  Transmission Date: 20191004
  Serious: Yes (Disabling)
  Sender: FDA-Public Use
  Company Number: FR-BIOGEN-2019BI00775015

PATIENT
  Age: 42 Year
  Sex: Female
  Weight: 62 kg

DRUGS (1)
  1. TYSABRI [Suspect]
     Active Substance: NATALIZUMAB
     Indication: MULTIPLE SCLEROSIS
     Route: 042
     Dates: start: 2008

REACTIONS (3)
  - Dactylitis [Not Recovered/Not Resolved]
  - Arthralgia [Not Recovered/Not Resolved]
  - Oedema peripheral [Not Recovered/Not Resolved]

NARRATIVE: CASE EVENT DATE: 201803
